FAERS Safety Report 11319504 (Version 1)
Quarter: 2015Q3

REPORT INFORMATION
  Report Type: Spontaneous
  Country: US (occurrence: None)
  Receive Date: 20150728
  Receipt Date: 20150728
  Transmission Date: 20151125
  Serious: Yes (Hospitalization)
  Sender: FDA-Public Use
  Company Number: None

PATIENT
  Age: 45 Year
  Sex: Female
  Weight: 86.4 kg

DRUGS (1)
  1. RISPERIDONE. [Suspect]
     Active Substance: RISPERIDONE
     Indication: BIPOLAR DISORDER
     Dosage: 4 MG  AT BEDTIME  PO
     Route: 048
     Dates: start: 20150126, end: 20150126

REACTIONS (2)
  - Sedation [None]
  - Anuria [None]

NARRATIVE: CASE EVENT DATE: 20150125
